FAERS Safety Report 15498381 (Version 1)
Quarter: 2018Q4

REPORT INFORMATION
  Report Type: Spontaneous
  Country: US (occurrence: US)
  Receive Date: 20181005
  Receipt Date: 20181005
  Transmission Date: 20190205
  Serious: Yes (Hospitalization)
  Sender: FDA-Public Use
  Company Number: None

PATIENT
  Age: 63 Year
  Sex: Female
  Weight: 77.6 kg

DRUGS (1)
  1. NUVIGIL [Suspect]
     Active Substance: ARMODAFINIL
     Dates: end: 20180914

REACTIONS (11)
  - Fall [None]
  - Vomiting [None]
  - Failure to thrive [None]
  - Tumour pseudoprogression [None]
  - Abnormal loss of weight [None]
  - Glioblastoma multiforme [None]
  - Malignant neoplasm progression [None]
  - Vitamin B12 decreased [None]
  - Facial bones fracture [None]
  - Nausea [None]
  - Product dose omission [None]

NARRATIVE: CASE EVENT DATE: 20180914
